FAERS Safety Report 9071636 (Version 1)
Quarter: 2013Q1

REPORT INFORMATION
  Report Type: Spontaneous
  Country: GB (occurrence: GB)
  Receive Date: 20130129
  Receipt Date: 20130129
  Transmission Date: 20140127
  Serious: Yes (Hospitalization, Other)
  Sender: FDA-Public Use
  Company Number: GB-TARO-2013P1001193

PATIENT
  Age: 76 Year
  Sex: Female

DRUGS (4)
  1. WARFARIN [Suspect]
     Indication: ATRIAL FIBRILLATION
  2. AMOXICILLIN [Suspect]
     Indication: PNEUMONIA
     Route: 048
  3. CLARITHROMYCIN [Suspect]
     Indication: PNEUMONIA
     Route: 048
  4. DIGOXIN [Concomitant]

REACTIONS (4)
  - Abdominal wall haematoma [Recovered/Resolved]
  - Large intestinal obstruction [Recovered/Resolved]
  - Potentiating drug interaction [Recovered/Resolved]
  - Anticoagulation drug level above therapeutic [Recovered/Resolved]
